FAERS Safety Report 4866944-1 (Version None)
Quarter: 2005Q4

REPORT INFORMATION
  Report Type: 
  Country: None (occurrence: None)
  Receive Date: 20051222
  Receipt Date: 20051215
  Transmission Date: 20060501
  Serious: Yes (Hospitalization)
  Sender: FDA-Public Use
  Company Number: 200514345GDS

PATIENT
  Age: 47 Year
  Sex: Female

DRUGS (2)
  1. AVELOX [Suspect]
     Indication: PNEUMONIA PNEUMOCOCCAL
     Dosage: 400 MG, QD, ORAL
     Route: 048
     Dates: start: 20051130, end: 20051212
  2. BACTRIM [Concomitant]

REACTIONS (1)
  - LUNG ABSCESS [None]
